FAERS Safety Report 8082258-3 (Version None)
Quarter: 2012Q1

REPORT INFORMATION
  Report Type: 
  Country: None (occurrence: None)
  Receive Date: 20120127
  Receipt Date: 20110215
  Transmission Date: 20120608
  Serious: No
  Sender: FDA-Public Use
  Company Number: US-ABBOTT-11P-163-0705364-00

PATIENT
  Sex: Female
  Weight: 65.83 kg

DRUGS (5)
  1. LISINOPRIL [Concomitant]
     Indication: HYPERTENSION
  2. HUMIRA [Suspect]
     Indication: ANKYLOSING SPONDYLITIS
     Dates: start: 20101101
  3. ASPIRIN [Concomitant]
     Indication: CARDIAC DISORDER
  4. ZYRTEC [Concomitant]
     Indication: HYPERSENSITIVITY
  5. LORTAB [Concomitant]
     Indication: ANKYLOSING SPONDYLITIS

REACTIONS (1)
  - WRONG TECHNIQUE IN DRUG USAGE PROCESS [None]
